FAERS Safety Report 8063730-9 (Version None)
Quarter: 2012Q1

REPORT INFORMATION
  Report Type: 
  Country: None (occurrence: None)
  Receive Date: 20120123
  Receipt Date: 20120110
  Transmission Date: 20120608
  Serious: Yes (Hospitalization)
  Sender: FDA-Public Use
  Company Number: PHHY2012FR005257

PATIENT
  Sex: Female

DRUGS (6)
  1. BISOPROLOL FUMARATE [Concomitant]
     Dosage: 2.5 MG, DAILY
  2. LASIX [Concomitant]
     Dosage: 40 MG PER DAY
  3. RAMIPRIL [Suspect]
     Dosage: 5 MG, QD
     Route: 048
     Dates: start: 20111011, end: 20111021
  4. AMLODIPINE BESYLATE [Concomitant]
     Dosage: 300 MG, PER DAY
  5. ASPIRIN [Concomitant]
     Dosage: 160 MG, PER DAY
  6. IRBESARTAN [Concomitant]
     Dosage: UNK
     Dates: end: 20111104

REACTIONS (6)
  - ANGIOEDEMA [None]
  - DYSPNOEA [None]
  - TONGUE OEDEMA [None]
  - MACROGLOSSIA [None]
  - LUNG DISORDER [None]
  - LOCALISED OEDEMA [None]
